FAERS Safety Report 17896318 (Version 1)
Quarter: 2020Q2

REPORT INFORMATION
  Report Type: Spontaneous
  Country: US (occurrence: US)
  Receive Date: 20200615
  Receipt Date: 20200615
  Transmission Date: 20200714
  Serious: No
  Sender: FDA-Public Use
  Company Number: US-ELI_LILLY_AND_COMPANY-US202006000360

PATIENT
  Sex: Female

DRUGS (1)
  1. HUMATROPE [Suspect]
     Active Substance: SOMATROPIN
     Dosage: 6 MG, UNKNOWN
     Route: 065

REACTIONS (4)
  - Fall [Recovering/Resolving]
  - Product dose omission [Unknown]
  - Sciatica [Unknown]
  - Pain in extremity [Unknown]
